FAERS Safety Report 18596025 (Version 1)
Quarter: 2020Q4

REPORT INFORMATION
  Report Type: Spontaneous
  Country: US (occurrence: US)
  Receive Date: 20201209
  Receipt Date: 20201209
  Transmission Date: 20210114
  Serious: No
  Sender: FDA-Public Use
  Company Number: None

PATIENT
  Age: 73 Year
  Sex: Female
  Weight: 53 kg

DRUGS (6)
  1. EXEMESTANE. [Suspect]
     Active Substance: EXEMESTANE
     Indication: BREAST CANCER
     Route: 048
     Dates: start: 20200811, end: 20201113
  2. CETIRIZINE 10 MG DAILY [Concomitant]
  3. ZETIA 10 MG DAILY [Concomitant]
  4. LEVOTHYROXINE 88 MCG DAILY [Concomitant]
  5. METFORMIN 1000 MG DAILY [Concomitant]
  6. TORSEMIDE 5 MG DAILY [Concomitant]

REACTIONS (1)
  - Liver function test increased [None]

NARRATIVE: CASE EVENT DATE: 20200915
